FAERS Safety Report 4788118-5 (Version None)
Quarter: 2005Q3

REPORT INFORMATION
  Report Type: 
  Country: None (occurrence: None)
  Receive Date: 20050920
  Receipt Date: 20041015
  Transmission Date: 20060218
  Serious: Yes (Hospitalization)
  Sender: FDA-Public Use
  Company Number: PHEH2004US11205

PATIENT
  Sex: Female
  Weight: 86.2 kg

DRUGS (5)
  1. FEMARA [Suspect]
     Indication: BREAST CANCER METASTATIC
     Dates: start: 20040803, end: 20041015
  2. LOPRESSOR [Concomitant]
  3. SYNTHROID [Concomitant]
  4. HYZAAR [Concomitant]
  5. ASPIRIN [Concomitant]

REACTIONS (1)
  - DEEP VEIN THROMBOSIS [None]
